FAERS Safety Report 9921942 (Version 2)
Quarter: 2014Q1

REPORT INFORMATION
  Report Type: Spontaneous
  Country: CN (occurrence: CN)
  Receive Date: 20140225
  Receipt Date: 20140305
  Transmission Date: 20141002
  Serious: Yes (Hospitalization)
  Sender: FDA-Public Use
  Company Number: PHHY2014CN020434

PATIENT
  Age: 41 Year
  Sex: Female

DRUGS (3)
  1. RIBAVIRIN [Suspect]
     Indication: ANTIVIRAL TREATMENT
     Dosage: 800 MG, DAILY
  2. INTERFERON ALFA-2A [Suspect]
     Indication: ANTIVIRAL TREATMENT
     Dosage: 3 OT, TIW
  3. INTERFERON ALFA-2A [Suspect]
     Dosage: 180 UG, QW

REACTIONS (10)
  - Congestive cardiomyopathy [Recovering/Resolving]
  - Fatigue [Recovering/Resolving]
  - Dyspnoea [Recovering/Resolving]
  - Jugular vein distension [Recovering/Resolving]
  - Heart sounds abnormal [Recovering/Resolving]
  - Cardiac murmur [Recovering/Resolving]
  - Pulmonary congestion [Recovering/Resolving]
  - Left ventricular dysfunction [Recovering/Resolving]
  - Oedema peripheral [Recovering/Resolving]
  - Hypothyroidism [Recovering/Resolving]
